FAERS Safety Report 7800320-4 (Version None)
Quarter: 2011Q4

REPORT INFORMATION
  Report Type: 
  Country: None (occurrence: None)
  Receive Date: 20111006
  Receipt Date: 20110926
  Transmission Date: 20120403
  Serious: Yes (Hospitalization, Other)
  Sender: FDA-Public Use
  Company Number: US-BAYER-2010-002277

PATIENT
  Age: 33 Year
  Sex: Female
  Weight: 140.59 kg

DRUGS (6)
  1. YASMIN [Suspect]
     Indication: CONTRACEPTION
     Dosage: UNK
     Dates: start: 20030701, end: 20060801
  2. YASMIN [Suspect]
     Indication: PREMENSTRUAL SYNDROME
  3. LEXAPRO [Concomitant]
     Dosage: 10 MG, UNK
     Dates: start: 20060714, end: 20060811
  4. LEXAPRO [Concomitant]
     Dosage: 20 MG, UNK
     Dates: start: 20060811, end: 20070920
  5. IMITREX [Concomitant]
     Dosage: 100 MG, UNK
     Dates: start: 20060405
  6. ZOLOFT [Concomitant]
     Dosage: 50 MG, UNK
     Dates: start: 20060510

REACTIONS (3)
  - GALLBLADDER INJURY [None]
  - CHOLECYSTITIS CHRONIC [None]
  - DEEP VEIN THROMBOSIS [None]
